FAERS Safety Report 4665542-2 (Version None)
Quarter: 2005Q2

REPORT INFORMATION
  Report Type: 
  Country: None (occurrence: None)
  Receive Date: 20050519
  Receipt Date: 20050308
  Transmission Date: 20051028
  Serious: Yes (Hospitalization, Other)
  Sender: FDA-Public Use
  Company Number: 200512196GDDC

PATIENT
  Age: 83 Year
  Sex: Female

DRUGS (15)
  1. ARAVA [Suspect]
     Indication: RHEUMATOID ARTHRITIS
     Dosage: DOSE: 10-20
     Route: 048
     Dates: start: 20041218, end: 20050228
  2. PREDNISONE [Concomitant]
     Route: 048
  3. DIAMICRON [Concomitant]
     Indication: DIABETES MELLITUS
     Route: 048
  4. INSULIN UNSPECIFIED [Concomitant]
     Indication: DIABETES MELLITUS
     Dosage: DOSE: UNK; DOSE UNIT: UNITS
     Route: 058
  5. NEXIUM [Concomitant]
     Indication: GASTROINTESTINAL DISORDER
     Route: 048
  6. ASPIRIN [Concomitant]
     Route: 048
  7. METFORMIN [Concomitant]
     Indication: DIABETES MELLITUS
     Route: 048
  8. LASIX [Concomitant]
     Route: 048
  9. MAXERAN [Concomitant]
     Route: 048
  10. VOLTAREN [Concomitant]
     Route: 048
  11. IMOVANE [Concomitant]
     Indication: INSOMNIA
     Route: 048
  12. BIOFLAVONOIDS [Concomitant]
     Dosage: DOSE: UNK
  13. ANUSOL                                  /NET/ [Concomitant]
     Dosage: DOSE: UNK
     Route: 054
  14. BISOLVON [Concomitant]
     Dosage: DOSE: UNK
     Route: 048
  15. PIRITON [Concomitant]
     Indication: HYPERSENSITIVITY
     Dosage: DOSE: UNK
     Route: 048

REACTIONS (24)
  - AORTIC VALVE SCLEROSIS [None]
  - ASTHENIA [None]
  - ATRIAL FIBRILLATION [None]
  - CHOLELITHIASIS [None]
  - CONTUSION [None]
  - DIZZINESS [None]
  - HAEMOGLOBIN DECREASED [None]
  - HEPATIC CONGESTION [None]
  - HIATUS HERNIA [None]
  - LIVER FUNCTION TEST ABNORMAL [None]
  - LOBAR PNEUMONIA [None]
  - LOWER RESPIRATORY TRACT INFECTION [None]
  - MICROANGIOPATHIC HAEMOLYTIC ANAEMIA [None]
  - MITRAL VALVE INCOMPETENCE [None]
  - ORAL CANDIDIASIS [None]
  - PERIPHERAL COLDNESS [None]
  - PLATELET COUNT DECREASED [None]
  - RECTAL HAEMORRHAGE [None]
  - RHEUMATOID VASCULITIS [None]
  - SKIN ULCER [None]
  - SPUTUM DISCOLOURED [None]
  - THROMBOCYTOPENIC PURPURA [None]
  - URINARY TRACT INFECTION [None]
  - URINE ANALYSIS ABNORMAL [None]
